FAERS Safety Report 16982240 (Version 1)
Quarter: 2019Q4

REPORT INFORMATION
  Report Type: Spontaneous
  Country: FR (occurrence: FR)
  Receive Date: 20191101
  Receipt Date: 20191101
  Transmission Date: 20200122
  Serious: Yes (Other)
  Sender: FDA-Public Use
  Company Number: FR-TEVA-2019-FR-1130183

PATIENT
  Age: 69 Year
  Sex: Female

DRUGS (10)
  1. FLECTOR TISSUGEL 1 %, EMPL?TRE M?DICAMENTEUX [Concomitant]
     Dosage: 3 DF; 1 %
     Route: 003
     Dates: end: 20190202
  2. AZITHROMYCINE DIHYDRAT?E [Suspect]
     Active Substance: AZITHROMYCIN
     Indication: LUNG DISORDER
     Dosage: 1 DF
     Route: 048
     Dates: start: 20190131, end: 20190131
  3. SPASFON [Concomitant]
     Indication: ABDOMINAL RIGIDITY
     Dosage: 6 DF
     Route: 048
  4. NEBIVOLOL. [Concomitant]
     Active Substance: NEBIVOLOL
     Indication: ESSENTIAL HYPERTENSION
     Dosage: 1 DF
     Route: 048
  5. ROPINIROLE (CHLORHYDRATE DE) [Concomitant]
     Active Substance: ROPINIROLE HYDROCHLORIDE
     Dosage: 0.5 MG
     Route: 048
  6. IPRATROPIUM BROMIDE\FENOTEROL HYDROBROMIDE [Concomitant]
     Active Substance: FENOTEROL HYDROBROMIDE\IPRATROPIUM BROMIDE
     Indication: LUNG DISORDER
     Dosage: 2 DF
     Route: 055
  7. NABUCOX 500 MG, COMPRIM? PELLICUL? [Suspect]
     Active Substance: NABUMETONE
     Dosage: 2 DF
     Route: 048
     Dates: end: 20190202
  8. EZETROL 10 MG, COMPRIM? [Concomitant]
     Active Substance: EZETIMIBE
     Indication: HYPERCHOLESTEROLAEMIA
     Dosage: 1 DF
     Route: 048
  9. LOXEN L P 50 MG, G?LULE ? LIB?RATION PROLONG?E [Concomitant]
     Active Substance: NICARDIPINE HYDROCHLORIDE
     Indication: ESSENTIAL HYPERTENSION
     Dosage: 2 DF
     Route: 048
  10. ASPIRINE PROTECT 100 MG, COMPRIM? GASTRO-R?SISTANT [Concomitant]
     Active Substance: ASPIRIN
     Indication: PROPHYLAXIS AGAINST GASTROINTESTINAL ULCER
     Dosage: 1 DF
     Route: 048
     Dates: end: 20190202

REACTIONS (4)
  - Haematuria [Recovered/Resolved]
  - Purpura [Recovered/Resolved]
  - Thrombocytopenia [Recovered/Resolved]
  - Mouth ulceration [Recovered/Resolved]

NARRATIVE: CASE EVENT DATE: 20190202
